FAERS Safety Report 18927769 (Version 1)
Quarter: 2021Q1

REPORT INFORMATION
  Report Type: Spontaneous
  Country: ES (occurrence: ES)
  Receive Date: 20210223
  Receipt Date: 20210223
  Transmission Date: 20210420
  Serious: Yes (Other)
  Sender: FDA-Public Use
  Company Number: NVSC2021ES030785

PATIENT
  Age: 56 Year
  Sex: Female
  Weight: 85 kg

DRUGS (1)
  1. SALAGEN [Suspect]
     Active Substance: PILOCARPINE HYDROCHLORIDE
     Indication: DRY MOUTH
     Dosage: 5 MG, Q8H
     Route: 048
     Dates: start: 20201204

REACTIONS (3)
  - Hypertension [Not Recovered/Not Resolved]
  - Dyspepsia [Recovered/Resolved]
  - Hot flush [Recovered/Resolved]

NARRATIVE: CASE EVENT DATE: 20201207
